FAERS Safety Report 7268505-6 (Version None)
Quarter: 2011Q1

REPORT INFORMATION
  Report Type: 
  Country: None (occurrence: None)
  Receive Date: 20110121
  Receipt Date: 20110114
  Transmission Date: 20110831
  Serious: Yes (Disabling, Other)
  Sender: FDA-Public Use
  Company Number: NSR_00121_2011

PATIENT
  Age: 52 Year
  Sex: Female

DRUGS (2)
  1. FLUOXETINE [Suspect]
     Indication: DEPRESSIVE SYMPTOM
     Dosage: (60 MG QD)
  2. ALPRAZOLAM [Suspect]
     Indication: DEPRESSIVE SYMPTOM
     Dosage: (1.5 MG QD)

REACTIONS (2)
  - EXTRAPYRAMIDAL DISORDER [None]
  - SUICIDAL IDEATION [None]
